FAERS Safety Report 18190676 (Version 1)
Quarter: 2020Q3

REPORT INFORMATION
  Report Type: Spontaneous
  Country: GB (occurrence: GB)
  Receive Date: 20200825
  Receipt Date: 20200825
  Transmission Date: 20201103
  Serious: Yes (Disabling)
  Sender: FDA-Public Use
  Company Number: GB-ALKEM LABORATORIES LIMITED-GB-ALKEM-2020-04904

PATIENT
  Age: 58 Year
  Sex: Female

DRUGS (13)
  1. OXYCODONE HYDROCHLORIDE. [Concomitant]
     Active Substance: OXYCODONE HYDROCHLORIDE
     Indication: PRODUCT USED FOR UNKNOWN INDICATION
     Dosage: TAKE ONE TABLET UP TO FOUR TIMES A DAY, (EVERY)
     Route: 065
     Dates: start: 20200327
  2. AMITRIPTYLINE HYDROCHLORIDE. [Concomitant]
     Active Substance: AMITRIPTYLINE HYDROCHLORIDE
     Indication: PRODUCT USED FOR UNKNOWN INDICATION
     Dosage: TAKE ONE TABLET AT NIGHT FOR ONE WEEK THEN TWO, (EVERY)
     Route: 065
     Dates: start: 20200505, end: 20200602
  3. DULOXETINE. [Concomitant]
     Active Substance: DULOXETINE
     Indication: PRODUCT USED FOR UNKNOWN INDICATION
     Dosage: 1 DOSAGE FORM, QD, AT NIGHT STARTING 13/7/20, (EVERY 1 DAY)
     Route: 065
     Dates: start: 20200707
  4. PREDNISOLONE. [Concomitant]
     Active Substance: PREDNISOLONE
     Indication: PRODUCT USED FOR UNKNOWN INDICATION
     Dosage: 6 DOSAGE FORM, QD, IN MORNING AFTER BREAKFAST FOR 5 DAYS, (EVERY 1 DAY)
     Route: 065
     Dates: start: 20200707
  5. SALBUTAMOL [Concomitant]
     Active Substance: ALBUTEROL
     Indication: PRODUCT USED FOR UNKNOWN INDICATION
     Dosage: ONE OR TWO PUFFS TO BE INHALED WHEN NEEDED, PRN
     Route: 055
     Dates: start: 20200327
  6. PREGABALIN. [Suspect]
     Active Substance: PREGABALIN
     Indication: PRODUCT USED FOR UNKNOWN INDICATION
     Dosage: 150 MILLIGRAM, TAKE 1 CAPSULE 3 TIMES A DAY THEN 2 CAPSULES 3 TIMES A DAY FROM 14/7/20, (EVERY)
     Route: 065
     Dates: start: 20200630, end: 20200728
  7. CITALOPRAM [Concomitant]
     Active Substance: CITALOPRAM HYDROBROMIDE
     Indication: PRODUCT USED FOR UNKNOWN INDICATION
     Dosage: 1 DOSAGE FORM, QD, IN THE MORNING WITH, (EVERY 1 DAY)
     Route: 065
     Dates: start: 20200327
  8. LANSOPRAZOLE. [Concomitant]
     Active Substance: LANSOPRAZOLE
     Indication: PRODUCT USED FOR UNKNOWN INDICATION
     Dosage: 1 DOSAGE FORM, QD, (EVERY 1 DAY)
     Route: 065
     Dates: start: 20200327
  9. LONGTEC [Concomitant]
     Active Substance: OXYCODONE HYDROCHLORIDE
     Indication: PRODUCT USED FOR UNKNOWN INDICATION
     Dosage: 1 DOSAGE FORM, BID, (EVERY 12 HOUR)
     Route: 065
     Dates: start: 20200327
  10. MONTELUKAST [Concomitant]
     Active Substance: MONTELUKAST SODIUM
     Indication: PRODUCT USED FOR UNKNOWN INDICATION
     Dosage: 1 DOSAGE FORM, QD, AT NIGHT, (EVERY 1 DAY)
     Route: 065
     Dates: start: 20200624, end: 20200722
  11. BISACODYL. [Concomitant]
     Active Substance: BISACODYL
     Indication: PRODUCT USED FOR UNKNOWN INDICATION
     Dosage: 1 DOSAGE FORM, QD, AT NIGHT, (EVERY 1 DAY)
     Route: 065
     Dates: start: 20200327
  12. CETIRIZINE [Concomitant]
     Active Substance: CETIRIZINE HYDROCHLORIDE
     Indication: PRODUCT USED FOR UNKNOWN INDICATION
     Dosage: 1 DOSAGE FORM, QD, (EVERY 1 DAY)
     Route: 065
     Dates: start: 20200327
  13. FOSTAIR [Concomitant]
     Active Substance: BECLOMETHASONE\FORMOTEROL
     Indication: PRODUCT USED FOR UNKNOWN INDICATION
     Dosage: 100 MICROGRAM, BECLOMETASONE DIPROPIONATE 100MICROGRAMS, (EVERY)
     Route: 065
     Dates: start: 20200327

REACTIONS (2)
  - Dyspnoea [Recovered/Resolved]
  - Gastrooesophageal reflux disease [Recovered/Resolved]

NARRATIVE: CASE EVENT DATE: 20200728
